FAERS Safety Report 5958249-2 (Version None)
Quarter: 2008Q4

REPORT INFORMATION
  Report Type: 
  Country: None (occurrence: None)
  Receive Date: 20081119
  Receipt Date: 20081111
  Transmission Date: 20090506
  Serious: Yes (Hospitalization)
  Sender: FDA-Public Use
  Company Number: US-WYE-H06818508

PATIENT
  Age: 19 Year
  Sex: Male

DRUGS (4)
  1. ROBITUSSIN [Suspect]
     Indication: DRUG USE FOR UNKNOWN INDICATION
     Dosage: UNSPECIFIED AMOUNT
     Route: 048
     Dates: start: 20080930, end: 20080101
  2. THERAFLU FLU AND CHEST CONGESTION [Suspect]
     Indication: INFLUENZA
     Dosage: UNSPECIFIED AMOUNT
     Route: 048
     Dates: start: 20080930, end: 20080930
  3. THERAFLU FLU AND CHEST CONGESTION [Suspect]
     Indication: UPPER RESPIRATORY TRACT CONGESTION
  4. TYLENOL (CAPLET) [Suspect]
     Dosage: UNSPECIFIED AMOUNT
     Route: 048
     Dates: start: 20080930, end: 20080930

REACTIONS (2)
  - HEADACHE [None]
  - PNEUMONIA [None]
